FAERS Safety Report 7851381-8 (Version None)
Quarter: 2011Q4

REPORT INFORMATION
  Report Type: 
  Country: None (occurrence: None)
  Receive Date: 20111026
  Receipt Date: 20111019
  Transmission Date: 20120403
  Serious: Yes (Hospitalization, Other)
  Sender: FDA-Public Use
  Company Number: JP-JNJFOC-20110800455

PATIENT
  Sex: Female
  Weight: 53 kg

DRUGS (7)
  1. DIPYRIDAMOLE [Concomitant]
     Indication: PROPHYLAXIS
     Route: 048
     Dates: start: 20100730
  2. METHOTREXATE [Concomitant]
     Indication: RHEUMATOID ARTHRITIS
     Route: 048
     Dates: start: 20100122, end: 20110725
  3. GOLIMUMAB [Suspect]
     Indication: RHEUMATOID ARTHRITIS
     Route: 058
     Dates: start: 20090114
  4. KELNAC [Concomitant]
     Indication: PROPHYLAXIS
     Route: 048
     Dates: start: 20101112, end: 20110728
  5. GOLIMUMAB [Suspect]
     Route: 058
     Dates: start: 20110406
  6. FOLIC ACID [Concomitant]
     Indication: PROPHYLAXIS
     Route: 048
     Dates: start: 20090703, end: 20110723
  7. LOXOPROFEN [Concomitant]
     Indication: RHEUMATOID ARTHRITIS
     Route: 048
     Dates: start: 20101112, end: 20110728

REACTIONS (2)
  - DISSOCIATIVE DISORDER [None]
  - BREAST CANCER [None]
